FAERS Safety Report 20966259 (Version 2)
Quarter: 2022Q3

REPORT INFORMATION
  Report Type: Other
  Country: US (occurrence: None)
  Receive Date: 20220616
  Receipt Date: 20220704
  Transmission Date: 20221026
  Serious: Yes (Other)
  Sender: FDA-Public Use
  Company Number: US-ROCHE-3098918

PATIENT
  Age: 72 Year
  Sex: Female

DRUGS (4)
  1. VABYSMO [Suspect]
     Active Substance: FARICIMAB-SVOA
     Indication: Age-related macular degeneration
     Dosage: (THIRD DOSE) DATE OF LAST DOSE OF  STUDY DRUG PRIOR TO SAE: 05/MAY/2022.
     Route: 050
     Dates: start: 20220224, end: 20220505
  2. EYLEA [Concomitant]
     Active Substance: AFLIBERCEPT
  3. BEOVU [Concomitant]
     Active Substance: BROLUCIZUMAB-DBLL
  4. OZURDEX [Concomitant]
     Active Substance: DEXAMETHASONE

REACTIONS (5)
  - Uveitis [Not Recovered/Not Resolved]
  - Blindness [Unknown]
  - Retinal occlusive vasculitis [Unknown]
  - Eye inflammation [Unknown]
  - Orthostatic intolerance [Unknown]

NARRATIVE: CASE EVENT DATE: 20220426
